FAERS Safety Report 5903452-0 (Version None)
Quarter: 2008Q3

REPORT INFORMATION
  Report Type: 
  Country: None (occurrence: None)
  Receive Date: 20080930
  Receipt Date: 20080918
  Transmission Date: 20090109
  Serious: Yes (Death, Hospitalization)
  Sender: FDA-Public Use
  Company Number: AT-ROCHE-542792

PATIENT
  Sex: Male
  Weight: 75 kg

DRUGS (10)
  1. MYCOPHENOLATE MOFETIL [Suspect]
     Route: 065
     Dates: start: 20050615, end: 20071206
  2. MYCOPHENOLATE MOFETIL [Suspect]
     Route: 065
     Dates: end: 20080514
  3. PREDNISOLON [Concomitant]
  4. CYCLOSPORINE [Concomitant]
     Dosage: DAILY DOSE 50
  5. FLUVASTATIN [Concomitant]
  6. LISINOPRIL AND HYDROCHLOROTHIAZIDE [Concomitant]
     Dosage: STRENGTH  20/12.5
  7. METOPROLOL SUCCINATE [Concomitant]
  8. TAMSULOSIN HCL [Concomitant]
  9. ACENOCOUMAROL [Concomitant]
     Dosage: DRUG NAME REPORTED AS ACENOCUMAROL
  10. DEXAMETHASONE TAB [Concomitant]
     Indication: GLIOBLASTOMA
     Dates: start: 20071119, end: 20080514

REACTIONS (2)
  - GLIOBLASTOMA MULTIFORME [None]
  - PNEUMONIA [None]
